FAERS Safety Report 14132310 (Version 6)
Quarter: 2018Q2

REPORT INFORMATION
  Report Type: Spontaneous
  Country: JP (occurrence: JP)
  Receive Date: 20171027
  Receipt Date: 20180402
  Transmission Date: 20180711
  Serious: Yes (Death, Hospitalization, Other)
  Sender: FDA-Public Use
  Company Number: JP-009507513-1710JPN002764J

PATIENT
  Age: 69 Year
  Sex: Female
  Weight: 36 kg

DRUGS (1)
  1. KEYTRUDA [Suspect]
     Active Substance: PEMBROLIZUMAB
     Indication: LUNG ADENOCARCINOMA
     Dosage: 200 MG, Q3W
     Route: 041
     Dates: start: 20170815, end: 20170928

REACTIONS (5)
  - Cushing^s syndrome [Not Recovered/Not Resolved]
  - Condition aggravated [Unknown]
  - Meningitis [Unknown]
  - Malignant neoplasm progression [Fatal]
  - Asthenia [Fatal]

NARRATIVE: CASE EVENT DATE: 20171007
